FAERS Safety Report 16821592 (Version 1)
Quarter: 2019Q3

REPORT INFORMATION
  Report Type: Spontaneous
  Country: US (occurrence: US)
  Receive Date: 20190918
  Receipt Date: 20190918
  Transmission Date: 20191005
  Serious: Yes (Other)
  Sender: FDA-Public Use
  Company Number: US-TEVA-2019-US-1107635

PATIENT
  Sex: Female

DRUGS (1)
  1. BACLOFEN. [Suspect]
     Active Substance: BACLOFEN
     Dosage: ONCE PER DAY AND THEN INCREASE TO THREE PILLS OVER SEVERAL DAYS
     Route: 048

REACTIONS (4)
  - Head injury [Unknown]
  - Somnolence [Unknown]
  - Fall [Unknown]
  - Concussion [Unknown]
